FAERS Safety Report 21052925 (Version 6)
Quarter: 2022Q4

REPORT INFORMATION
  Report Type: Report from Study
  Country: US (occurrence: US)
  Receive Date: 20220707
  Receipt Date: 20221107
  Transmission Date: 20230113
  Serious: No
  Sender: FDA-Public Use
  Company Number: US-NOVARTISTESTPH-NVSC2022US154257

PATIENT
  Sex: Male

DRUGS (3)
  1. COSENTYX [Suspect]
     Active Substance: SECUKINUMAB
     Indication: Ankylosing spondylitis
     Dosage: 150 MG (EVERY WEEK X 5 WEEKS)
     Route: 058
     Dates: start: 20220531
  2. COSENTYX [Suspect]
     Active Substance: SECUKINUMAB
     Dosage: 150 MG, QMO (EVERY 4 WEEKS)
     Route: 058
  3. COSENTYX [Suspect]
     Active Substance: SECUKINUMAB
     Dosage: 150 MG
     Route: 065
     Dates: start: 20220628

REACTIONS (10)
  - Hepatic enzyme increased [Unknown]
  - Joint swelling [Unknown]
  - Fatigue [Unknown]
  - Neck pain [Not Recovered/Not Resolved]
  - Back pain [Recovering/Resolving]
  - Psoriasis [Unknown]
  - Musculoskeletal stiffness [Recovering/Resolving]
  - Middle insomnia [Unknown]
  - Musculoskeletal discomfort [Unknown]
  - Drug ineffective [Unknown]
